FAERS Safety Report 19702553 (Version 2)
Quarter: 2021Q3

REPORT INFORMATION
  Report Type: Spontaneous
  Country: US (occurrence: US)
  Receive Date: 20210815
  Receipt Date: 20210825
  Transmission Date: 20211014
  Serious: No
  Sender: FDA-Public Use
  Company Number: US-JNJFOC-20210800473

PATIENT
  Age: 50 Year
  Sex: Male
  Weight: 113.5 kg

DRUGS (3)
  1. TREMFYA [Suspect]
     Active Substance: GUSELKUMAB
     Indication: ACCIDENTAL EXPOSURE TO PRODUCT
  2. TREMFYA [Suspect]
     Active Substance: GUSELKUMAB
     Indication: PSORIASIS
     Dosage: 1 UNITS INVOLVED, FREQUENCY: OTHER?FIRST DOSE ABOUT 4 WEEKS AGO, SECOND DOSE MISSED, FOLLOWED BY A D
     Route: 065
     Dates: start: 202106
  3. TREMFYA [Suspect]
     Active Substance: GUSELKUMAB
     Indication: PSORIASIS

REACTIONS (4)
  - Accidental exposure to product [Unknown]
  - Product dose omission issue [Unknown]
  - Drug delivery system malfunction [Unknown]
  - Device leakage [Unknown]

NARRATIVE: CASE EVENT DATE: 20210730
